FAERS Safety Report 5404213-1 (Version None)
Quarter: 2007Q3

REPORT INFORMATION
  Report Type: 
  Country: None (occurrence: None)
  Receive Date: 20070802
  Receipt Date: 20070725
  Transmission Date: 20080115
  Serious: Yes (Hospitalization)
  Sender: FDA-Public Use
  Company Number: US-ROCHE-508691

PATIENT
  Age: 86 Year
  Sex: Female

DRUGS (2)
  1. BONIVA [Suspect]
     Indication: DRUG USE FOR UNKNOWN INDICATION
     Dosage: THE MEDICATION WAS STARTED IN 2006.
     Route: 065
  2. 1 CONCOMITANT DRUG [Concomitant]
     Dosage: REPORTED AS MEDICATION FOR HIGH BLOOD PRESSURE

REACTIONS (1)
  - CEREBROVASCULAR ACCIDENT [None]
